FAERS Safety Report 5474812-X (Version None)
Quarter: 2007Q3

REPORT INFORMATION
  Report Type: 
  Country: None (occurrence: None)
  Receive Date: 20070928
  Receipt Date: 20070918
  Transmission Date: 20080115
  Serious: Yes (Life-Threatening, Hospitalization)
  Sender: FDA-Public Use
  Company Number: 310001M07LTU

PATIENT
  Age: 25 Year
  Sex: Female
  Weight: 82 kg

DRUGS (4)
  1. GONAL-F [Suspect]
     Indication: INFERTILITY FEMALE
     Dosage: 75 IU, 1 DAYS, SUBCUTANEOUS
     Route: 058
     Dates: start: 20070314, end: 20070319
  2. CLOMIPHENE CITRATE [Concomitant]
  3. TRIPTORELIN [Concomitant]
  4. DYDROGESTERONE TAB [Concomitant]

REACTIONS (4)
  - DRUG INTERACTION [None]
  - JUGULAR VEIN THROMBOSIS [None]
  - OVARIAN HYPERSTIMULATION SYNDROME [None]
  - VENA CAVA THROMBOSIS [None]
